FAERS Safety Report 22152732 (Version 1)
Quarter: 2023Q1

REPORT INFORMATION
  Report Type: Spontaneous
  Country: US (occurrence: None)
  Receive Date: 20230329
  Receipt Date: 20230329
  Transmission Date: 20230418
  Serious: Yes (Death, Hospitalization, Other)
  Sender: FDA-Public Use
  Company Number: 2023A071255

PATIENT
  Age: 908 Month
  Sex: Male

DRUGS (1)
  1. SYMBICORT [Suspect]
     Active Substance: BUDESONIDE\FORMOTEROL FUMARATE DIHYDRATE
     Indication: Chronic obstructive pulmonary disease
     Dosage: 160.0UG UNKNOWN
     Route: 055

REACTIONS (14)
  - Myocardial infarction [Fatal]
  - Cardiac failure [Fatal]
  - Circulatory collapse [Fatal]
  - Renal failure [Fatal]
  - Peripheral arterial occlusive disease [Unknown]
  - Haematotoxicity [Unknown]
  - Glaucoma [Unknown]
  - Renal impairment [Unknown]
  - Swelling [Unknown]
  - Weight decreased [Unknown]
  - Venous stenosis [Unknown]
  - Pneumonia [Unknown]
  - Dyspnoea [Unknown]
  - Feeding disorder [Unknown]

NARRATIVE: CASE EVENT DATE: 20220601
